FAERS Safety Report 8641069 (Version 3)
Quarter: 2012Q4

REPORT INFORMATION
  Report Type: Report from Study
  Country: US (occurrence: None)
  Receive Date: 20120531
  Receipt Date: 20120927
  Transmission Date: 20130627
  Serious: Yes (Hospitalization)
  Sender: FDA-Public Use
  Company Number: 2012PROUSA01439

PATIENT
  Age: 79 Year
  Sex: Male
  Weight: 81.6 kg

DRUGS (19)
  1. PROVENGE [Suspect]
     Indication: PROSTATE CANCER METASTATIC
     Dosage: 250 ML, SINGLE INTRAVENOUS
     Route: 042
     Dates: start: 20120503, end: 20120503
  2. PROVENGE [Suspect]
     Indication: PROSTATE CANCER METASTATIC
     Dosage: 250 ML, SINGLE INTRAVENOUS
     Route: 042
     Dates: start: 20120517, end: 20120517
  3. PROSCAR [Concomitant]
  4. COLACE (DOCUSATE SODIUM) [Concomitant]
  5. OSCAL [Concomitant]
  6. ADVAIR HFA [Concomitant]
  7. FOSAMAX [Concomitant]
  8. LASIX (FUROSEMIDE) [Concomitant]
  9. FLONASE [Concomitant]
  10. SENNA [Concomitant]
  11. LACTULOSE [Concomitant]
  12. BENADRYL [Concomitant]
  13. GLUCOTROL [Concomitant]
  14. AMLODIPINE [Concomitant]
  15. ATORVASTATIN [Concomitant]
  16. TAMSULOSIN HYDROCHLORIDE [Concomitant]
  17. CARVEDILOL [Concomitant]
  18. BICALUTAMIDE [Concomitant]
  19. HALFPRIN (ACETYLSALICYLIC ACID) TABLET [Concomitant]

REACTIONS (3)
  - Acute myocardial infarction [None]
  - Acute coronary syndrome [None]
  - Bradycardia [None]
